FAERS Safety Report 5900525-3 (Version None)
Quarter: 2008Q3

REPORT INFORMATION
  Report Type: 
  Country: None (occurrence: None)
  Receive Date: 20080926
  Receipt Date: 20080917
  Transmission Date: 20090109
  Serious: Yes (Hospitalization)
  Sender: FDA-Public Use
  Company Number: TW-B.I. PHARMACEUTICALS,INC./RIDGEFIELD-2008-DE-05492GD

PATIENT

DRUGS (3)
  1. DIPYRIDAMOLE [Suspect]
  2. NSAIDS [Suspect]
  3. ASPIRIN [Suspect]

REACTIONS (1)
  - PEPTIC ULCER HAEMORRHAGE [None]
